FAERS Safety Report 8559567-4 (Version None)
Quarter: 2012Q3

REPORT INFORMATION
  Report Type: 
  Country: None (occurrence: None)
  Receive Date: 20120802
  Receipt Date: 20120730
  Transmission Date: 20120928
  Serious: Yes (Other)
  Sender: FDA-Public Use
  Company Number: AU-ABBOTT-12P-008-0961627-00

PATIENT
  Sex: Female

DRUGS (5)
  1. VALPROATE SODIUM [Concomitant]
     Indication: PRODUCT USED FOR UNKNOWN INDICATION
  2. ACETAMINOPHEN [Concomitant]
     Indication: PRODUCT USED FOR UNKNOWN INDICATION
  3. CLARITHROMYCIN [Suspect]
     Indication: URINARY TRACT DISORDER
     Dates: start: 20110622
  4. VERAPAMIL [Interacting]
     Indication: MIGRAINE
     Dosage: 240 MG DAILY
  5. AMOXYCILLIN-POTASSIUM CLAVULANATE [Concomitant]
     Indication: PRODUCT USED FOR UNKNOWN INDICATION

REACTIONS (2)
  - DRUG INTERACTION [None]
  - HYPOTENSION [None]
